FAERS Safety Report 22036418 (Version 9)
Quarter: 2024Q3

REPORT INFORMATION
  Report Type: Report from Study
  Country: AR (occurrence: AR)
  Receive Date: 20230225
  Receipt Date: 20240812
  Transmission Date: 20241016
  Serious: Yes (Other)
  Sender: NOVARTIS
  Company Number: AR-002147023-NVSC2023AR043430

PATIENT
  Age: 50 Year
  Sex: Female

DRUGS (3)
  1. KISQALI [Suspect]
     Active Substance: RIBOCICLIB
     Indication: Breast cancer metastatic
     Dosage: 600 MG, QD
     Route: 048
     Dates: start: 20220818
  2. KISQALI [Suspect]
     Active Substance: RIBOCICLIB
     Dosage: 150 MG, QMO
     Route: 065
     Dates: start: 202208, end: 202310
  3. LETROZOLE [Suspect]
     Active Substance: LETROZOLE
     Indication: Breast cancer metastatic
     Dosage: 2.5 MG, QD
     Route: 048
     Dates: start: 20220818

REACTIONS (17)
  - Hypokalaemia [Unknown]
  - Erysipelas [Unknown]
  - Purulent discharge [Unknown]
  - Pain [Unknown]
  - Gait disturbance [Unknown]
  - Dysstasia [Unknown]
  - Peripheral swelling [Unknown]
  - Skin discolouration [Unknown]
  - Breast cancer metastatic [Unknown]
  - Malignant neoplasm progression [Unknown]
  - Skin fissures [Unknown]
  - Varicose vein ruptured [Unknown]
  - Weight decreased [Unknown]
  - Swelling [Unknown]
  - Skin ulcer [Unknown]
  - Ill-defined disorder [Unknown]
  - Product use issue [Unknown]

NARRATIVE: CASE EVENT DATE: 20230106
